FAERS Safety Report 12337409 (Version 2)
Quarter: 2016Q2

REPORT INFORMATION
  Report Type: Spontaneous
  Country: KR (occurrence: KR)
  Receive Date: 20160505
  Receipt Date: 20160505
  Transmission Date: 20160815
  Serious: Yes (Life-Threatening, Other)
  Sender: FDA-Public Use
  Company Number: KR-SA-2016SA086889

PATIENT
  Age: 14 Year
  Sex: Male

DRUGS (4)
  1. CYCLOPHOSPHAMIDE. [Concomitant]
     Active Substance: CYCLOPHOSPHAMIDE
     Indication: OSTEOSARCOMA
  2. GEMCITABINE [Suspect]
     Active Substance: GEMCITABINE\GEMCITABINE HYDROCHLORIDE
     Indication: OSTEOSARCOMA
     Dosage: 3 COURSES
     Route: 065
  3. DOCETAXEL. [Suspect]
     Active Substance: DOCETAXEL
     Indication: OSTEOSARCOMA
     Dosage: 3 COURSES
     Route: 065
  4. TOPOTECAN [Concomitant]
     Active Substance: TOPOTECAN\TOPOTECAN HYDROCHLORIDE
     Indication: OSTEOSARCOMA

REACTIONS (1)
  - Treatment failure [Unknown]
